FAERS Safety Report 19927354 (Version 1)
Quarter: 2021Q4

REPORT INFORMATION
  Report Type: Spontaneous
  Country: CH (occurrence: CH)
  Receive Date: 20211007
  Receipt Date: 20211007
  Transmission Date: 20220303
  Serious: Yes (Other)
  Sender: FDA-Public Use
  Company Number: CH-SUN PHARMACEUTICAL INDUSTRIES LTD-2021RR-313639

PATIENT
  Age: 25 Year
  Sex: Female

DRUGS (1)
  1. IBUPROFEN [Suspect]
     Active Substance: IBUPROFEN
     Indication: Back pain
     Dosage: ONE TABLET OF IBUPROFEN 400 MG
     Route: 065

REACTIONS (3)
  - Pruritus [Unknown]
  - Dyspnoea [Unknown]
  - Pharyngeal swelling [Unknown]
